FAERS Safety Report 9068820 (Version 1)
Quarter: 2013Q1

REPORT INFORMATION
  Report Type: Spontaneous
  Country: US (occurrence: US)
  Receive Date: 20130215
  Receipt Date: 20130215
  Transmission Date: 20140127
  Serious: Yes (Death)
  Sender: FDA-Public Use
  Company Number: US-BANPHARM-20130720

PATIENT
  Age: 54 Year
  Sex: Female

DRUGS (14)
  1. CETIRIZINE HCL [Suspect]
     Route: 048
  2. DIPHENHYDRAMINE AND ACETAMINOPHEN UNKNOWN PRODUCT [Suspect]
  3. AMITRIPTYLINE [Suspect]
     Route: 048
  4. TRAZODONE [Suspect]
     Route: 048
  5. GREEN TEA LEAF [Suspect]
  6. GABAPENTIN [Suspect]
     Route: 048
  7. LISINOPRIL [Suspect]
     Route: 048
  8. LIPOZENE [Suspect]
     Route: 048
  9. MONTELUKAST [Suspect]
     Route: 048
  10. DOCUSATE [Suspect]
     Route: 048
  11. PREDNISONE [Suspect]
     Route: 048
  12. UNSPECIFIED INGREDIENT [Suspect]
  13. HYDROXYZINE [Suspect]
  14. PAMABROM [Suspect]

REACTIONS (1)
  - Death [Fatal]
